FAERS Safety Report 6983725-3 (Version None)
Quarter: 2010Q3

REPORT INFORMATION
  Report Type: 
  Country: None (occurrence: None)
  Receive Date: 20100914
  Receipt Date: 20081201
  Transmission Date: 20110219
  Serious: No
  Sender: FDA-Public Use
  Company Number: US-WYE-H07111608

PATIENT
  Age: 77 Year
  Sex: Female
  Weight: 77.18 kg

DRUGS (3)
  1. ADVIL LIQUI-GELS [Suspect]
     Indication: TOOTHACHE
     Dosage: 2 CAPLETS
     Route: 048
     Dates: end: 20081101
  2. ADVIL LIQUI-GELS [Suspect]
     Dosage: 3 CAPLETS AS NEEDED
     Route: 048
     Dates: start: 20081101, end: 20081130
  3. ASPIRIN [Concomitant]

REACTIONS (2)
  - INCORRECT DOSE ADMINISTERED [None]
  - NERVOUSNESS [None]
